FAERS Safety Report 6657908-6 (Version None)
Quarter: 2010Q1

REPORT INFORMATION
  Report Type: 
  Country: None (occurrence: None)
  Receive Date: 20100326
  Receipt Date: 20100311
  Transmission Date: 20100710
  Serious: Yes (Hospitalization)
  Sender: FDA-Public Use
  Company Number: LMI-2010-00045

PATIENT
  Age: 72 Year
  Sex: Female
  Weight: 154.223 kg

DRUGS (12)
  1. DEFINITY [Suspect]
     Indication: ECHOCARDIOGRAM
     Dosage: INTRAVENOUS
     Route: 042
     Dates: start: 20091210, end: 20091210
  2. BACTRIM DS [Concomitant]
  3. HYDROCHLOROTHIAZIDE [Concomitant]
  4. ACTOS [Concomitant]
  5. ALLOPURINOL [Concomitant]
  6. GLYBURIDE [Concomitant]
  7. DIOVAN [Concomitant]
  8. LASIX [Concomitant]
  9. ASPIRIN [Concomitant]
  10. POTASSIUM CHLORIDE [Concomitant]
  11. VANCOMYCIN [Concomitant]
  12. HEPARIN [Concomitant]

REACTIONS (17)
  - ASTHENIA [None]
  - BACK PAIN [None]
  - BLADDER DILATATION [None]
  - BLADDER PAIN [None]
  - BURNING SENSATION [None]
  - CELLULITIS [None]
  - DECREASED ACTIVITY [None]
  - DEHYDRATION [None]
  - DIZZINESS [None]
  - DRUG INTERACTION [None]
  - GLOMERULONEPHRITIS [None]
  - HYPOPHAGIA [None]
  - HYPOVOLAEMIA [None]
  - INFECTION [None]
  - MUSCLE TWITCHING [None]
  - RENAL FAILURE [None]
  - RETCHING [None]
